FAERS Safety Report 5622944-5 (Version None)
Quarter: 2008Q1

REPORT INFORMATION
  Report Type: 
  Country: None (occurrence: None)
  Receive Date: 20080212
  Receipt Date: 20080201
  Transmission Date: 20080703
  Serious: Yes (Death)
  Sender: FDA-Public Use
  Company Number: US-JNJFOC-20070603972

PATIENT
  Sex: Female

DRUGS (1)
  1. ORTHO EVRA [Suspect]
     Indication: DYSMENORRHOEA
     Route: 062

REACTIONS (3)
  - OFF LABEL USE [None]
  - PLEURAL EFFUSION [None]
  - RESPIRATORY FAILURE [None]
